FAERS Safety Report 25601514 (Version 1)
Quarter: 2025Q3

REPORT INFORMATION
  Report Type: Spontaneous
  Country: CA (occurrence: CA)
  Receive Date: 20250724
  Receipt Date: 20250724
  Transmission Date: 20251020
  Serious: Yes (Hospitalization, Disabling)
  Sender: ORGANON
  Company Number: CA-ORGANON-O2507CAN001920

PATIENT
  Age: 87 Year
  Sex: Female

DRUGS (1)
  1. FOSAMAX [Suspect]
     Active Substance: ALENDRONATE SODIUM
     Route: 065

REACTIONS (2)
  - Femur fracture [Recovering/Resolving]
  - Skin disorder [Recovering/Resolving]
